FAERS Safety Report 16227833 (Version 4)
Quarter: 2019Q2

REPORT INFORMATION
  Report Type: Spontaneous
  Country: US (occurrence: US)
  Receive Date: 20190423
  Receipt Date: 20190528
  Transmission Date: 20190711
  Serious: No
  Sender: FDA-Public Use
  Company Number: US-PFIZER INC-2019167713

PATIENT
  Age: 54 Year
  Sex: Female
  Weight: 76.14 kg

DRUGS (1)
  1. GABAPENTIN. [Suspect]
     Active Substance: GABAPENTIN
     Dosage: UNK

REACTIONS (3)
  - Gingival swelling [Unknown]
  - Drug ineffective [Unknown]
  - Gingival bleeding [Unknown]
